FAERS Safety Report 9322934 (Version 1)
Quarter: 2013Q2

REPORT INFORMATION
  Report Type: Report from Study
  Country: VE (occurrence: VE)
  Receive Date: 20130602
  Receipt Date: 20130602
  Transmission Date: 20140414
  Serious: Yes (Hospitalization, Other)
  Sender: FDA-Public Use
  Company Number: VE-ABBOTT-13P-178-1097613-00

PATIENT
  Age: 60 Year
  Sex: 0
  Weight: 53 kg

DRUGS (1)
  1. HUMIRA [Suspect]
     Indication: RHEUMATOID ARTHRITIS
     Route: 058
     Dates: start: 20070301, end: 201303

REACTIONS (6)
  - Cholecystectomy [Recovered/Resolved]
  - Breast mass [Recovered/Resolved]
  - Nephrolithiasis [Recovering/Resolving]
  - Urinary tract infection [Recovering/Resolving]
  - Respiratory tract infection [Recovering/Resolving]
  - Respiratory disorder [Unknown]
